FAERS Safety Report 16288150 (Version 1)
Quarter: 2019Q2

REPORT INFORMATION
  Report Type: Report from Study
  Country: CA (occurrence: CA)
  Receive Date: 20190508
  Receipt Date: 20190508
  Transmission Date: 20190711
  Serious: Yes (Death)
  Sender: FDA-Public Use
  Company Number: PHHY2019CA104812

PATIENT
  Age: 87 Year
  Sex: Male

DRUGS (1)
  1. SANDOSTATIN LAR DEPOT [Suspect]
     Active Substance: OCTREOTIDE ACETATE
     Indication: PANCREATIC CARCINOMA METASTATIC
     Dosage: 30 MG, QMO
     Route: 030
     Dates: start: 20140123

REACTIONS (1)
  - Death [Fatal]

NARRATIVE: CASE EVENT DATE: 201811
